FAERS Safety Report 10149834 (Version 1)
Quarter: 2014Q2

REPORT INFORMATION
  Report Type: Spontaneous
  Country: FR (occurrence: None)
  Receive Date: 20140430
  Receipt Date: 20140430
  Transmission Date: 20141212
  Serious: Yes (Life-Threatening, Other)
  Sender: FDA-Public Use
  Company Number: AUR-APL-2014-05143

PATIENT
  Age: 72 Year
  Sex: Male

DRUGS (7)
  1. METFORMIN (METFORMIN) [Suspect]
     Indication: TYPE 2 DIABETES MELLITUS
     Route: 048
     Dates: start: 200804
  2. CORDARONE [Suspect]
     Indication: ATRIAL FIBRILLATION
     Route: 048
  3. ALLOPURINOL (ALLOPURINOL) [Suspect]
     Indication: HYPERURICAEMIA
     Route: 048
  4. ATACAND (CANDESARTAN CILEXETIL) [Suspect]
     Indication: HYPERTENSION
     Route: 048
     Dates: start: 200904, end: 201112
  5. LEVOTHYROX [Suspect]
     Indication: THYROIDITIS
     Route: 048
     Dates: start: 2003
  6. PREVISCAN (PENTOXIFYLLINE) [Suspect]
     Indication: THROMBOSIS PROPHYLAXIS
     Route: 048
  7. COKENZEN (BLOPRESS PLUS) [Concomitant]

REACTIONS (3)
  - Pulmonary embolism [None]
  - Lung adenocarcinoma [None]
  - Metastasis [None]
